FAERS Safety Report 6299310-5 (Version None)
Quarter: 2009Q3

REPORT INFORMATION
  Report Type: 
  Country: None (occurrence: None)
  Receive Date: 20090806
  Receipt Date: 20090728
  Transmission Date: 20100115
  Serious: Yes (Other)
  Sender: FDA-Public Use
  Company Number: KR-PFIZER INC-2009248517

PATIENT
  Age: 77 Year

DRUGS (3)
  1. NORVASC [Suspect]
     Route: 048
  2. PLETAL [Concomitant]
     Dosage: UNK
     Route: 048
  3. LECTOPAM TAB [Concomitant]
     Dosage: UNK
     Route: 048

REACTIONS (4)
  - BLOOD PRESSURE DECREASED [None]
  - INTENTIONAL DRUG MISUSE [None]
  - POLYPECTOMY [None]
  - SURGERY [None]
